FAERS Safety Report 8488385-0 (Version None)
Quarter: 2012Q3

REPORT INFORMATION
  Report Type: 
  Country: None (occurrence: None)
  Receive Date: 20120705
  Receipt Date: 20120629
  Transmission Date: 20120928
  Serious: Yes (Hospitalization)
  Sender: FDA-Public Use
  Company Number: US-BAYER-2011-048176

PATIENT
  Age: 33 Year
  Sex: Female
  Weight: 105.6 kg

DRUGS (20)
  1. YAZ [Suspect]
     Indication: PREMENSTRUAL SYNDROME
     Dosage: UNK
     Dates: start: 20090101, end: 20090101
  2. METFORMIN HCL [Concomitant]
     Dosage: 500 MG, BID
     Route: 048
  3. PRAVASTATIN [Concomitant]
     Dosage: 20 MG, QD
     Route: 048
  4. OMEPRAZOLE [Concomitant]
     Dosage: 20 MG, QD
     Route: 048
  5. NORVASC [Concomitant]
     Dosage: 5 MG, QD
     Route: 048
     Dates: start: 20060101, end: 20100201
  6. YAZ [Suspect]
  7. LANTUS [Concomitant]
     Route: 058
  8. BACTRIM DS [Concomitant]
     Dosage: UNK UNK, BID
     Route: 048
     Dates: start: 20090606
  9. HYDROCODONE BITARTRATE [Concomitant]
     Dosage: 5 MG, UNK
  10. QVAR 40 [Concomitant]
     Dosage: 80 MCG/24HR, BID
  11. ALBUTEROL [Concomitant]
  12. ZOLOFT [Concomitant]
     Dosage: 100 MG, QD
     Route: 048
  13. PREDNISONE [Concomitant]
     Dosage: 40 MG, QD
     Route: 048
     Dates: start: 20090606
  14. PROMETHAZINE [Concomitant]
     Dosage: 12.5 MG, UNK
  15. ROCEPHIN [Concomitant]
     Dosage: 1 G, ONCE
     Route: 042
  16. LOPRESSOR [Concomitant]
     Dosage: 50 MG, QD
     Route: 048
  17. TRILEPTAL [Concomitant]
     Dosage: 600 MG, BID
     Route: 048
  18. FLUCONAZOLE [Concomitant]
     Dosage: 100 MG, QD
     Route: 048
     Dates: start: 20090606
  19. TRIAMTERENE [Concomitant]
     Dosage: 37.5 MG, QD
     Route: 048
     Dates: start: 20060101, end: 20100201
  20. NITROFURANTOIN [Concomitant]
     Dosage: 100 MG, BID
     Route: 048

REACTIONS (3)
  - PAIN [None]
  - PULMONARY EMBOLISM [None]
  - POST-TRAUMATIC STRESS DISORDER [None]
